FAERS Safety Report 7784846-8 (Version None)
Quarter: 2011Q3

REPORT INFORMATION
  Report Type: 
  Country: None (occurrence: None)
  Receive Date: 20110928
  Receipt Date: 20110922
  Transmission Date: 20111222
  Serious: Yes (Hospitalization, Other)
  Sender: FDA-Public Use
  Company Number: US-PFIZER INC-2011226145

PATIENT
  Sex: Female
  Weight: 90.703 kg

DRUGS (3)
  1. ZOLOFT [Suspect]
     Dosage: 100 MG, DAILY
     Dates: start: 20110801
  2. LYRICA [Suspect]
     Indication: FIBROMYALGIA
     Dosage: UNK
     Dates: start: 20030101, end: 20110901
  3. CYMBALTA [Concomitant]
     Dosage: UNK

REACTIONS (2)
  - SUICIDE ATTEMPT [None]
  - HOMICIDAL IDEATION [None]
